FAERS Safety Report 8113230-2 (Version None)
Quarter: 2012Q1

REPORT INFORMATION
  Report Type: 
  Country: None (occurrence: None)
  Receive Date: 20120203
  Receipt Date: 20120130
  Transmission Date: 20120608
  Serious: No
  Sender: FDA-Public Use
  Company Number: US-PFIZER INC-2012025945

PATIENT
  Sex: Female

DRUGS (3)
  1. EFFEXOR XR [Suspect]
     Indication: DEPRESSION
     Dosage: 225 MG, DAILY
     Route: 048
     Dates: start: 20040101, end: 20120101
  2. VENLAFAXINE HYDROCHLORIDE [Suspect]
     Indication: DEPRESSION
     Dosage: UNK
     Dates: start: 20120101
  3. ZYPREXA [Concomitant]
     Dosage: UNK
     Route: 048

REACTIONS (3)
  - DRY MOUTH [None]
  - DIZZINESS [None]
  - PANIC ATTACK [None]
